FAERS Safety Report 21672574 (Version 1)
Quarter: 2022Q4

REPORT INFORMATION
  Report Type: Spontaneous
  Country: US (occurrence: US)
  Receive Date: 20221202
  Receipt Date: 20221202
  Transmission Date: 20230113
  Serious: Yes (Other)
  Sender: FDA-Public Use
  Company Number: US-BRISTOL-MYERS SQUIBB COMPANY-2022-142734

PATIENT
  Age: 40 Year
  Sex: Male

DRUGS (3)
  1. DASATINIB [Suspect]
     Active Substance: DASATINIB
     Indication: Chronic myeloid leukaemia
     Route: 065
  2. DASATINIB [Suspect]
     Active Substance: DASATINIB
     Route: 065
  3. DASATINIB [Suspect]
     Active Substance: DASATINIB
     Route: 065

REACTIONS (4)
  - Pulmonary oedema [Unknown]
  - Cytopenia [Unknown]
  - Pleural effusion [Unknown]
  - Pericardial effusion [Unknown]
